FAERS Safety Report 10086766 (Version 2)
Quarter: 2014Q2

REPORT INFORMATION
  Report Type: Spontaneous
  Country: US (occurrence: US)
  Receive Date: 20140418
  Receipt Date: 20140612
  Transmission Date: 20141212
  Serious: Yes (Other)
  Sender: FDA-Public Use
  Company Number: US-BAYER-2014-054809

PATIENT
  Age: 87 Year
  Sex: Female
  Weight: 52 kg

DRUGS (3)
  1. PHILLIPS^ MILK OF MAGNESIA CONCENTRATED LIQUID STRAWBERRY [Suspect]
     Indication: CONSTIPATION
     Dosage: 2 TABLESPOON, ONCE
     Route: 048
     Dates: start: 20140409, end: 20140409
  2. TYLENOL [PARACETAMOL] [Concomitant]
  3. BAYER ASPIRIN REGIMEN REGULAR 325 MG STRENGTH [Concomitant]

REACTIONS (5)
  - Choking [Recovered/Resolved]
  - Cough [Recovered/Resolved]
  - Speech disorder [Recovered/Resolved]
  - Throat irritation [Recovered/Resolved]
  - Oropharyngeal pain [Recovered/Resolved]
